FAERS Safety Report 24087481 (Version 1)
Quarter: 2024Q3

REPORT INFORMATION
  Report Type: Spontaneous
  Country: GB (occurrence: GB)
  Receive Date: 20240714
  Receipt Date: 20240714
  Transmission Date: 20241017
  Serious: Yes (Other)
  Sender: TEVA
  Company Number: None

PATIENT
  Sex: Female
  Weight: 75 kg

DRUGS (2)
  1. AMLODIPINE [Suspect]
     Active Substance: AMLODIPINE BESYLATE
     Indication: Hypertension
     Route: 065
     Dates: start: 2023
  2. TIMOLOL [Concomitant]
     Active Substance: TIMOLOL
     Indication: Adverse drug reaction

REACTIONS (1)
  - Gingival hypoplasia [Not Recovered/Not Resolved]

NARRATIVE: CASE EVENT DATE: 20230101
